FAERS Safety Report 13412064 (Version 2)
Quarter: 2017Q4

REPORT INFORMATION
  Report Type: Spontaneous
  Country: US (occurrence: US)
  Receive Date: 20170406
  Receipt Date: 20171123
  Transmission Date: 20180320
  Serious: No
  Sender: FDA-Public Use
  Company Number: US-JNJFOC-20170313724

PATIENT
  Sex: Male

DRUGS (2)
  1. RISPERDAL [Suspect]
     Active Substance: RISPERIDONE
     Indication: BIPOLAR DISORDER
     Dosage: IN VARYING DOSES OF 0.25 TO 0.5 MG
     Route: 048
     Dates: start: 20100624, end: 20121218
  2. RISPERIDONE. [Suspect]
     Active Substance: RISPERIDONE
     Indication: BIPOLAR DISORDER
     Dosage: IN VARYING DOSES OF 0.25 MG, 0.5 MG, 01 MG, 02 MG AND 03 MG
     Route: 048
     Dates: start: 20100620, end: 20121202

REACTIONS (3)
  - Blood prolactin increased [Unknown]
  - Emotional disorder [Unknown]
  - Gynaecomastia [Unknown]
